FAERS Safety Report 8582800-X (Version None)
Quarter: 2012Q3

REPORT INFORMATION
  Report Type: 
  Country: None (occurrence: None)
  Receive Date: 20120809
  Receipt Date: 20120801
  Transmission Date: 20120928
  Serious: Yes (Other)
  Sender: FDA-Public Use
  Company Number: US-JNJFOC-20120406720

PATIENT
  Sex: Female

DRUGS (5)
  1. TYLENOL [Suspect]
     Route: 048
  2. EXCEDRIN (MIGRAINE) [Suspect]
     Indication: MIGRAINE
     Route: 048
     Dates: start: 20070101, end: 20100101
  3. EXCEDRIN (ACETAMINOPHEN/CAFFEINE) [Suspect]
     Indication: MIGRAINE
     Route: 048
     Dates: start: 20100101, end: 20120301
  4. TYLENOL [Suspect]
     Indication: PRODUCT USED FOR UNKNOWN INDICATION
     Route: 048
  5. EXCEDRIN (MIGRAINE) [Suspect]
     Route: 048
     Dates: start: 20070101, end: 20100101

REACTIONS (3)
  - MATERNAL EXPOSURE DURING PREGNANCY [None]
  - PREMATURE LABOUR [None]
  - DRUG INEFFECTIVE [None]
